FAERS Safety Report 7107532-6 (Version None)
Quarter: 2010Q4

REPORT INFORMATION
  Report Type: 
  Country: None (occurrence: None)
  Receive Date: 20101117
  Receipt Date: 20101108
  Transmission Date: 20110411
  Serious: Yes (Hospitalization, Other)
  Sender: FDA-Public Use
  Company Number: US-ELI_LILLY_AND_COMPANY-US200910005610

PATIENT
  Sex: Female
  Weight: 119.73 kg

DRUGS (12)
  1. BYETTA [Suspect]
     Indication: DIABETES MELLITUS
     Dosage: UNK, UNKNOWN
     Route: 065
     Dates: start: 20051001, end: 20080810
  2. TUMS /00108001/ [Concomitant]
     Indication: DYSPEPSIA
  3. METFORMIN [Concomitant]
     Indication: DIABETES MELLITUS
  4. VYTORIN [Concomitant]
     Indication: BLOOD CHOLESTEROL
  5. MOTRIN [Concomitant]
     Indication: PAIN
  6. CYMBALTA [Concomitant]
  7. TOPAMAX [Concomitant]
     Indication: DEPRESSION
  8. TRAZODONE HCL [Concomitant]
     Indication: DEPRESSION
  9. IRON [Concomitant]
     Indication: MEDICAL DIET
  10. BACTRIM [Concomitant]
     Indication: URINARY TRACT INFECTION
  11. PHENAZOPYRIDINE HCL TAB [Concomitant]
     Indication: URINARY TRACT INFECTION
  12. ACTOS [Concomitant]
     Dates: end: 20051001

REACTIONS (5)
  - NAUSEA [None]
  - PANCREATITIS ACUTE [None]
  - RENAL FAILURE [None]
  - VOMITING [None]
  - WEIGHT DECREASED [None]
